FAERS Safety Report 8760287 (Version 1)
Quarter: 2012Q4

REPORT INFORMATION
  Report Type: Spontaneous
  Country: US (occurrence: None)
  Receive Date: 20120829
  Receipt Date: 20120829
  Transmission Date: 20130627
  Serious: Yes (Hospitalization)
  Sender: FDA-Public Use
  Company Number: None

PATIENT
  Age: 40 Year
  Sex: Female

DRUGS (1)
  1. IRON DEXTRAN [Suspect]
     Indication: IRON DEFICIENCY ANEMIA
     Route: 040
     Dates: start: 20120517, end: 20120517

REACTIONS (2)
  - Dyspnoea [None]
  - Wheezing [None]
